FAERS Safety Report 7467927-8 (Version None)
Quarter: 2011Q2

REPORT INFORMATION
  Report Type: 
  Country: None (occurrence: None)
  Receive Date: 20110509
  Receipt Date: 20110215
  Transmission Date: 20111010
  Serious: No
  Sender: FDA-Public Use
  Company Number: US-ALEXION-A201100198

PATIENT
  Sex: Male

DRUGS (9)
  1. VITAMIN C                          /00008001/ [Concomitant]
     Dosage: 500 MG, BID
  2. SOLIRIS [Suspect]
     Indication: PAROXYSMAL NOCTURNAL HAEMOGLOBINURIA
     Dosage: 600 MG, QW X4
     Route: 042
  3. WARFARIN [Concomitant]
     Dosage: 8 MG, QD
  4. SERTRALINE HYDROCHLORIDE [Concomitant]
     Dosage: 100 MG, QD
  5. ENABLEX                            /01760401/ [Concomitant]
     Dosage: 15 MG, QD
  6. SOLIRIS [Suspect]
     Dosage: 900 MG, Q2W
     Route: 042
  7. FOLIC ACID [Concomitant]
     Dosage: 400 UG, BID
  8. TAMSULOSIN HCL [Concomitant]
     Dosage: 1 TABLET QAM
  9. FERROUS SULFATE TAB [Concomitant]
     Dosage: UNK UG, BID

REACTIONS (5)
  - RHINORRHOEA [None]
  - NASAL CONGESTION [None]
  - PRODUCTIVE COUGH [None]
  - INFLUENZA [None]
  - FATIGUE [None]
